FAERS Safety Report 18057512 (Version 2)
Quarter: 2023Q2

REPORT INFORMATION
  Report Type: Spontaneous
  Country: IN (occurrence: IN)
  Receive Date: 20200723
  Receipt Date: 20230607
  Transmission Date: 20230722
  Serious: Yes (Death, Other)
  Sender: FDA-Public Use
  Company Number: IN-CIPLA (EU) LIMITED-2020IN04856

PATIENT

DRUGS (4)
  1. ATAZANAVIR\RITONAVIR [Suspect]
     Active Substance: ATAZANAVIR\RITONAVIR
     Indication: HIV infection
     Dosage: UNK
     Route: 065
  2. TENOFOVIR [Suspect]
     Active Substance: TENOFOVIR
     Indication: HIV infection
     Dosage: UNK
     Route: 065
  3. LAMIVUDINE [Suspect]
     Active Substance: LAMIVUDINE
     Indication: HIV infection
     Dosage: UNK
     Route: 065
  4. ZIDOVUDINE [Suspect]
     Active Substance: ZIDOVUDINE
     Indication: HIV infection
     Dosage: UNK
     Route: 065

REACTIONS (9)
  - Death [Fatal]
  - CSF HIV escape syndrome [Unknown]
  - Blood HIV RNA increased [Unknown]
  - Condition aggravated [Unknown]
  - Status epilepticus [Unknown]
  - Coma [Unknown]
  - Disease recurrence [Unknown]
  - Anaemia [Unknown]
  - Product administration interrupted [Unknown]
